FAERS Safety Report 9281276 (Version 2)
Quarter: 2013Q4

REPORT INFORMATION
  Report Type: Spontaneous
  Country: US (occurrence: US)
  Receive Date: 20130509
  Receipt Date: 20131105
  Transmission Date: 20140711
  Serious: Yes (Hospitalization)
  Sender: FDA-Public Use
  Company Number: US-BAYER-2013-057335

PATIENT
  Age: 35 Year
  Sex: Female

DRUGS (7)
  1. YAZ [Suspect]
     Dosage: UNK
     Dates: start: 2009, end: 2010
  2. YASMIN [Suspect]
     Dosage: UNK
     Dates: start: 2009, end: 2010
  3. OCELLA [Suspect]
     Dosage: UNK
     Dates: start: 2009, end: 2010
  4. TOPIRAMATE [Concomitant]
     Dosage: 25 MG, ONCE
     Route: 048
     Dates: start: 20090817, end: 20091110
  5. VICODIN [Concomitant]
     Dosage: 5 MG, UNK
     Dates: start: 20040209, end: 20101202
  6. VICODIN [Concomitant]
     Dosage: 500 MG, UNK
  7. PRISTIQ [Concomitant]
     Indication: ANXIETY
     Dosage: 50 MG, ONCE
     Route: 048
     Dates: start: 20090625, end: 20101002

REACTIONS (8)
  - Pulmonary embolism [None]
  - Pain [None]
  - Injury [None]
  - General physical health deterioration [None]
  - Abdominal pain [None]
  - Anxiety [None]
  - Emotional distress [None]
  - Pain [None]
